FAERS Safety Report 5337934-X (Version None)
Quarter: 2007Q2

REPORT INFORMATION
  Report Type: 
  Country: None (occurrence: None)
  Receive Date: 20070327
  Receipt Date: 20070127
  Transmission Date: 20071010
  Serious: No
  Sender: FDA-Public Use
  Company Number: 221084

PATIENT
  Age: 37 Year
  Sex: Female
  Weight: 65.8 kg

DRUGS (3)
  1. HERCEPTIN [Suspect]
     Indication: BREAST CANCER METASTATIC
     Dosage: 130 MG, 1/WEEK
     Dates: start: 20051130, end: 20060104
  2. AVASTIN [Suspect]
     Indication: BREAST CANCER METASTATIC
     Dosage: 10 MG/KG, Q2W, INTRAVENOUS
     Route: 042
     Dates: start: 20051130, end: 20051229
  3. TAXOL [Concomitant]

REACTIONS (1)
  - DERMATITIS ACNEIFORM [None]
